FAERS Safety Report 6271570-6 (Version None)
Quarter: 2009Q3

REPORT INFORMATION
  Report Type: 
  Country: None (occurrence: None)
  Receive Date: 20090717
  Receipt Date: 20090708
  Transmission Date: 20100115
  Serious: Yes (Disabling)
  Sender: FDA-Public Use
  Company Number: JP-TYCO HEALTHCARE/MALLINCKRODT-T200901184

PATIENT
  Age: 73 Year
  Sex: Female
  Weight: 36 kg

DRUGS (10)
  1. OPTIRAY 350 [Suspect]
     Indication: THERAPEUTIC EMBOLISATION
     Dosage: 110 ML, SINGLE
     Route: 013
     Dates: start: 20090602, end: 20090602
  2. OPTIRAY 350 [Suspect]
     Indication: ANGIOGRAM
  3. ETHYL ESTER OD IODINATED POPPY-SEED OIL FATTY ACID [Suspect]
     Indication: THERAPEUTIC EMBOLISATION
     Dosage: 12 ML, SINGLE
     Route: 013
     Dates: start: 20090602, end: 20090602
  4. EPIRUBICIN HYDROCHLORIDE [Suspect]
     Indication: HEPATIC NEOPLASM MALIGNANT
     Dosage: 40 MG, SINGLE
     Route: 013
     Dates: start: 20090602, end: 20090602
  5. EPIRUBICIN HYDROCHLORIDE [Suspect]
     Indication: THERAPEUTIC EMBOLISATION
  6. GELATIN [Suspect]
     Indication: THERAPEUTIC EMBOLISATION
     Dosage: 2 MM/
     Route: 013
     Dates: start: 20090602, end: 20090602
  7. LEVOFLOXACIN [Suspect]
     Indication: PROPHYLAXIS
     Dosage: 200 MG, QD
     Route: 048
     Dates: start: 20090602, end: 20090602
  8. CEFOTIAM HYDROCHLORIDE [Suspect]
     Indication: PROPHYLAXIS
     Dosage: 1 G, QD
     Route: 042
     Dates: start: 20090602, end: 20090602
  9. FLURBIPROFEN [Suspect]
     Indication: ANALGESIA
     Dosage: 50 MG, QD
     Route: 042
     Dates: start: 20090602, end: 20090602
  10. FLURBIPROFEN [Suspect]
     Dosage: 50 MG, BID
     Route: 042
     Dates: start: 20090603, end: 20090603

REACTIONS (5)
  - CONVULSION [None]
  - CYANOSIS [None]
  - DEPRESSED LEVEL OF CONSCIOUSNESS [None]
  - HEADACHE [None]
  - VISUAL IMPAIRMENT [None]
